FAERS Safety Report 14652666 (Version 1)
Quarter: 2018Q1

REPORT INFORMATION
  Report Type: Spontaneous
  Country: US (occurrence: US)
  Receive Date: 20180319
  Receipt Date: 20180319
  Transmission Date: 20180509
  Serious: No
  Sender: FDA-Public Use
  Company Number: US-AUROBINDO-AUR-APL-2017-39654

PATIENT
  Age: 68 Year
  Sex: Female

DRUGS (1)
  1. LAMOTRIGINE TABLETS 200 MG [Suspect]
     Active Substance: LAMOTRIGINE
     Indication: SEIZURE
     Dosage: 200 MG, DAILY
     Route: 048

REACTIONS (1)
  - Feeling abnormal [Not Recovered/Not Resolved]
